FAERS Safety Report 5378767-8 (Version None)
Quarter: 2007Q3

REPORT INFORMATION
  Report Type: 
  Country: None (occurrence: None)
  Receive Date: 20070705
  Receipt Date: 20070629
  Transmission Date: 20080115
  Serious: Yes (Other)
  Sender: FDA-Public Use
  Company Number: B0477742A

PATIENT
  Sex: Female

DRUGS (3)
  1. AMOXICILLIN AND CLAVULANATE POTASSIUM [Suspect]
     Route: 048
     Dates: start: 20061101
  2. ATORVASTATIN CALCIUM [Concomitant]
  3. DETENSIEL [Concomitant]
     Indication: HYPERTENSION

REACTIONS (1)
  - VISUAL ACUITY REDUCED [None]
